FAERS Safety Report 8013596-8 (Version None)
Quarter: 2011Q4

REPORT INFORMATION
  Report Type: 
  Country: None (occurrence: None)
  Receive Date: 20111229
  Receipt Date: 20111220
  Transmission Date: 20120403
  Serious: Yes (Hospitalization)
  Sender: FDA-Public Use
  Company Number: US-BAYER-2011-032248

PATIENT
  Age: 35 Year
  Sex: Female
  Weight: 100 kg

DRUGS (1)
  1. YAZ [Suspect]
     Indication: DYSFUNCTIONAL UTERINE BLEEDING
     Dosage: UNK
     Route: 048
     Dates: start: 20070504, end: 20070803

REACTIONS (9)
  - EMOTIONAL DISTRESS [None]
  - PULMONARY EMBOLISM [None]
  - DYSPNOEA EXERTIONAL [None]
  - INJURY [None]
  - GENERAL PHYSICAL HEALTH DETERIORATION [None]
  - BACK PAIN [None]
  - PAIN [None]
  - ANXIETY [None]
  - EXERCISE TOLERANCE DECREASED [None]
